FAERS Safety Report 20809687 (Version 2)
Quarter: 2022Q2

REPORT INFORMATION
  Report Type: Spontaneous
  Country: AR (occurrence: AR)
  Receive Date: 20220510
  Receipt Date: 20220603
  Transmission Date: 20220721
  Serious: Yes (Other)
  Sender: FDA-Public Use
  Company Number: AR-MLMSERVICE-20220425-3518636-1

PATIENT
  Age: 47 Year
  Sex: Female

DRUGS (1)
  1. GEMCITABINE HYDROCHLORIDE [Suspect]
     Active Substance: GEMCITABINE HYDROCHLORIDE
     Indication: Endometrial cancer
     Dosage: 2000 MG/M2, CYCLICAL
     Route: 065

REACTIONS (3)
  - Serous retinal detachment [Recovered/Resolved]
  - Retinopathy [Recovered/Resolved]
  - Thrombocytopenia [Unknown]
